FAERS Safety Report 21910875 (Version 6)
Quarter: 2023Q2

REPORT INFORMATION
  Report Type: Report from Study
  Country: FR (occurrence: FR)
  Receive Date: 20230125
  Receipt Date: 20230519
  Transmission Date: 20230721
  Serious: Yes (Other)
  Sender: FDA-Public Use
  Company Number: FR-VERTEX PHARMACEUTICALS-2023-000773

PATIENT
  Age: 40 Year
  Sex: Female
  Weight: 67 kg

DRUGS (31)
  1. ELEXACAFTOR\IVACAFTOR\TEZACAFTOR [Suspect]
     Active Substance: ELEXACAFTOR\IVACAFTOR\TEZACAFTOR
     Indication: Cystic fibrosis
     Dosage: 200 MG/100 MG/75 MG QD, 150 MG QD
     Route: 048
     Dates: start: 20200410
  2. ELEXACAFTOR\IVACAFTOR\TEZACAFTOR [Suspect]
     Active Substance: ELEXACAFTOR\IVACAFTOR\TEZACAFTOR
     Dosage: 200 MG/100 MG/75 MG QD, 150 MG QD
     Route: 048
     Dates: start: 20200410
  3. ELEXACAFTOR\IVACAFTOR\TEZACAFTOR [Suspect]
     Active Substance: ELEXACAFTOR\IVACAFTOR\TEZACAFTOR
     Dosage: 200 MG/100 MG/75 MG QD, 150 MG QD
     Route: 048
     Dates: start: 20200410
  4. PULMOZYME [Concomitant]
     Active Substance: DORNASE ALFA
     Indication: Cystic fibrosis lung
     Dosage: 2.5 MG, QD
     Dates: start: 20190408
  5. ALBUTEROL [Concomitant]
     Active Substance: ALBUTEROL
     Indication: Cystic fibrosis lung
     Dosage: 100 MICROGRAM, BID
     Dates: start: 20190408
  6. INNOVAIR [Concomitant]
     Active Substance: BECLOMETHASONE DIPROPIONATE\FORMOTEROL
     Indication: Cystic fibrosis lung
     Dosage: 400 MICROGRAM, BID
     Dates: start: 20190627
  7. SPIRIVA [Concomitant]
     Active Substance: TIOTROPIUM BROMIDE MONOHYDRATE
     Indication: Cystic fibrosis lung
     Dosage: 5 MICROGRAM, QD
     Dates: start: 20181217
  8. .ALPHA.-TOCOPHEROL ACETATE, D- [Concomitant]
     Active Substance: .ALPHA.-TOCOPHEROL ACETATE, D-
     Indication: Cystic fibrosis
     Dosage: 500 MG, QD
     Route: 048
     Dates: start: 2016
  9. .ALPHA.-TOCOPHEROL ACETATE, D- [Concomitant]
     Active Substance: .ALPHA.-TOCOPHEROL ACETATE, D-
     Indication: Pancreatic failure
  10. RETINOL [Concomitant]
     Active Substance: RETINOL
     Indication: Cystic fibrosis
     Dosage: 50000 UI, ONCE A WEEK
     Route: 048
     Dates: start: 2016
  11. RETINOL [Concomitant]
     Active Substance: RETINOL
     Indication: Pancreatic failure
  12. CHOLECALCIFEROL [Concomitant]
     Active Substance: CHOLECALCIFEROL
     Indication: Cystic fibrosis
     Dosage: 100000 UA, ONCE A MONTH
     Route: 048
     Dates: start: 2016
  13. CHOLECALCIFEROL [Concomitant]
     Active Substance: CHOLECALCIFEROL
     Indication: Pancreatic failure
  14. ETHINYL ESTRADIOL\LEVONORGESTREL [Concomitant]
     Active Substance: ETHINYL ESTRADIOL\LEVONORGESTREL
     Indication: Contraception
     Dosage: 0.1 MG, QD
     Route: 048
     Dates: start: 201907
  15. SINGULAIR [Concomitant]
     Active Substance: MONTELUKAST SODIUM
     Indication: Cystic fibrosis lung
     Dosage: 10 MG, QD
     Route: 048
     Dates: start: 20190408, end: 20210622
  16. BILASTINE [Concomitant]
     Active Substance: BILASTINE
     Indication: Conjunctivitis allergic
     Dosage: 20 MG, QD
     Route: 048
     Dates: start: 20190409
  17. AUGMENTIN [Concomitant]
     Active Substance: AMOXICILLIN\CLAVULANATE POTASSIUM
     Indication: Infective pulmonary exacerbation of cystic fibrosis
     Dosage: 1 GRAM, TID
     Route: 048
     Dates: start: 20210924, end: 20211008
  18. AUGMENTIN [Concomitant]
     Active Substance: AMOXICILLIN\CLAVULANATE POTASSIUM
     Dosage: UNK
     Dates: start: 20220623, end: 20220708
  19. AUGMENTIN [Concomitant]
     Active Substance: AMOXICILLIN\CLAVULANATE POTASSIUM
     Dosage: 1 GRAM, BID
     Route: 048
     Dates: start: 20221006, end: 20221021
  20. COLIMYCINE [Concomitant]
     Indication: Infective pulmonary exacerbation of cystic fibrosis
     Dosage: 1000000 UI
     Dates: start: 20210924, end: 20211022
  21. COMIRNATY [Concomitant]
     Active Substance: TOZINAMERAN
     Indication: COVID-19 prophylaxis
     Dosage: 1 UI, PRN
     Route: 030
     Dates: start: 20211222, end: 20211222
  22. GLIA Q [Concomitant]
     Indication: Alopecia
     Dosage: UNK, QD
     Route: 048
     Dates: start: 202105, end: 20220207
  23. BEROCCA BOOST [Concomitant]
     Indication: Alopecia
     Dosage: UNK, QD
     Route: 048
     Dates: start: 202201
  24. MINOXIDIL [Concomitant]
     Active Substance: MINOXIDIL
     Indication: Alopecia
     Dosage: UNK, QD
     Route: 048
     Dates: start: 20211215, end: 202205
  25. NOVOPHANE [Concomitant]
     Indication: Alopecia
     Dosage: UNK
     Dates: start: 20211215
  26. PANCRELIPASE [Concomitant]
     Active Substance: PANCRELIPASE
     Indication: Diarrhoea
     Dosage: UNK
     Dates: start: 20220528, end: 20221115
  27. PANCRELIPASE [Concomitant]
     Active Substance: PANCRELIPASE
     Indication: Abdominal pain
  28. CIPROFLOXACIN [Concomitant]
     Active Substance: CIPROFLOXACIN
     Indication: Infective pulmonary exacerbation of cystic fibrosis
     Dosage: UNK
     Dates: start: 20220623, end: 20220708
  29. DICLOFENAC [Concomitant]
     Active Substance: DICLOFENAC
     Indication: Tendonitis
     Dosage: 1 %, QD
     Route: 061
     Dates: start: 20220819, end: 20221122
  30. PREDNISOLONE [Concomitant]
     Active Substance: PREDNISOLONE
     Indication: Infective pulmonary exacerbation of cystic fibrosis
     Dosage: UNK
     Dates: start: 20221006, end: 20221009
  31. PANTOPRAZOLE [Concomitant]
     Active Substance: PANTOPRAZOLE
     Indication: Vomiting
     Dosage: UNK
     Dates: start: 20221006, end: 20221021

REACTIONS (1)
  - Angiolipoma [Not Recovered/Not Resolved]

NARRATIVE: CASE EVENT DATE: 20220613
